FAERS Safety Report 5228312-2 (Version None)
Quarter: 2007Q1

REPORT INFORMATION
  Report Type: 
  Country: None (occurrence: None)
  Receive Date: 20070131
  Receipt Date: 20070131
  Transmission Date: 20070707
  Serious: No
  Sender: FDA-Public Use
  Company Number: None

PATIENT
  Age: 53 Year
  Sex: Male
  Weight: 70 kg

DRUGS (4)
  1. AMBISOME [Suspect]
     Indication: PNEUMONIA
     Dosage: 50 MG Q 24 HOURS IV
     Route: 042
     Dates: start: 20061028
  2. HEPARIN [Concomitant]
  3. LIPITOR [Concomitant]
  4. NEURONTIN [Concomitant]

REACTIONS (3)
  - CONDITION AGGRAVATED [None]
  - HAEMATOCRIT DECREASED [None]
  - HAEMOGLOBIN DECREASED [None]
